FAERS Safety Report 7798331-0 (Version None)
Quarter: 2011Q4

REPORT INFORMATION
  Report Type: 
  Country: None (occurrence: None)
  Receive Date: 20111005
  Receipt Date: 20110929
  Transmission Date: 20120403
  Serious: Yes (Hospitalization)
  Sender: FDA-Public Use
  Company Number: KR-ELI_LILLY_AND_COMPANY-KR201107007743

PATIENT
  Age: 61 Year
  Sex: Female

DRUGS (1)
  1. BYETTA [Suspect]
     Indication: GLUCOSE TOLERANCE IMPAIRED
     Dosage: 5 UG, BID
     Route: 058
     Dates: start: 20110616

REACTIONS (1)
  - CORONARY ARTERY STENOSIS [None]
